FAERS Safety Report 10813599 (Version 1)
Quarter: 2015Q1

REPORT INFORMATION
  Report Type: Report from Study
  Country: BR (occurrence: BR)
  Receive Date: 20150218
  Receipt Date: 20150218
  Transmission Date: 20150721
  Serious: Yes (Hospitalization, Other)
  Sender: FDA-Public Use
  Company Number: PHHY2015BR012556

PATIENT
  Sex: Female
  Weight: 65 kg

DRUGS (7)
  1. NEOTIAPIM [Concomitant]
     Active Substance: QUETIAPINE
     Indication: BIPOLAR DISORDER
     Dosage: 1 DF, QD
     Route: 048
  2. EXELON PATCH [Suspect]
     Active Substance: RIVASTIGMINE
     Dosage: 13.3 MG, QD (ONE PATCH OF 15 CM2, DAILY)
     Route: 062
  3. EXELON PATCH [Suspect]
     Active Substance: RIVASTIGMINE
     Dosage: 9.5 MG, QD (ONE PATCH OF 10 CM2, DAILY)
     Route: 062
  4. EXELON PATCH [Suspect]
     Active Substance: RIVASTIGMINE
     Dosage: 13.3 MG, QD (ONE PATCH OF 15 CM2, DAILY)
     Route: 062
  5. EXELON PATCH [Suspect]
     Active Substance: RIVASTIGMINE
     Dosage: 9.5 MG, QD (ONE PATCH OF 10 CM2, DAILY)
     Route: 062
  6. MODURETIC 5-50 [Concomitant]
     Active Substance: AMILORIDE HYDROCHLORIDE\HYDROCHLOROTHIAZIDE
     Indication: SWELLING
     Dosage: 1 DF, QD
     Route: 048
  7. EXELON PATCH [Suspect]
     Active Substance: RIVASTIGMINE
     Indication: ABNORMAL BEHAVIOUR
     Dosage: 4.6 MG, QD (ONE PATCH OF 5 CM2, DAILY)
     Route: 062

REACTIONS (18)
  - Cerebrovascular accident [Recovered/Resolved with Sequelae]
  - Blood cholesterol increased [Recovered/Resolved]
  - Urinary tract infection [Recovered/Resolved]
  - Rash erythematous [Recovered/Resolved]
  - Depressed mood [Recovering/Resolving]
  - Drug ineffective [Recovering/Resolving]
  - Hypersensitivity [Recovered/Resolved]
  - High density lipoprotein decreased [Not Recovered/Not Resolved]
  - Asthenia [Recovering/Resolving]
  - Nervous system disorder [Recovering/Resolving]
  - Blister [Recovered/Resolved]
  - Agitation [Recovered/Resolved]
  - Pyrexia [Recovered/Resolved]
  - Confusional state [Not Recovered/Not Resolved]
  - Dry skin [Recovered/Resolved]
  - Product use issue [Unknown]
  - Kidney infection [Recovering/Resolving]
  - Blood urea increased [Recovered/Resolved]
